FAERS Safety Report 6510284-1 (Version None)
Quarter: 2009Q4

REPORT INFORMATION
  Report Type: 
  Country: None (occurrence: None)
  Receive Date: 20091222
  Receipt Date: 20091005
  Transmission Date: 20100525
  Serious: No
  Sender: FDA-Public Use
  Company Number: US-ASTRAZENECA-2009SE17970

PATIENT
  Age: 65 Year
  Sex: Female
  Weight: 86.2 kg

DRUGS (11)
  1. CRESTOR [Suspect]
     Route: 048
     Dates: start: 20090401, end: 20090601
  2. CRESTOR [Suspect]
     Route: 048
     Dates: start: 20090601, end: 20090601
  3. CRESTOR [Suspect]
     Route: 048
     Dates: start: 20090601
  4. GLIPIZIDE [Concomitant]
  5. AMLODIPINE [Concomitant]
  6. LISINOPRIL [Concomitant]
  7. FUROSEMIDE [Concomitant]
  8. ASPIRIN [Concomitant]
  9. FISH OIL [Concomitant]
  10. VIT B [Concomitant]
  11. VIT D [Concomitant]

REACTIONS (2)
  - CHEST PAIN [None]
  - THYROID FUNCTION TEST ABNORMAL [None]
